FAERS Safety Report 12840829 (Version 1)
Quarter: 2016Q4

REPORT INFORMATION
  Report Type: Spontaneous
  Country: US (occurrence: US)
  Receive Date: 20161012
  Receipt Date: 20161012
  Transmission Date: 20170207
  Serious: No
  Sender: FDA-Public Use
  Company Number: US-NOVOPROD-503365

PATIENT
  Sex: Female

DRUGS (2)
  1. SAXENDA [Suspect]
     Active Substance: LIRAGLUTIDE
     Indication: OBESITY
     Dosage: 3.0 MG QD
     Route: 058
     Dates: start: 20160425, end: 20160626
  2. SAXENDA [Suspect]
     Active Substance: LIRAGLUTIDE
     Indication: BLOOD PRESSURE INCREASED
     Dosage: 3.0 MG QOD
     Route: 058
     Dates: start: 20160627, end: 20160713

REACTIONS (4)
  - Nausea [Recovered/Resolved]
  - Off label use [Recovered/Resolved]
  - Weight loss poor [Recovered/Resolved]
  - Increased appetite [Recovered/Resolved]

NARRATIVE: CASE EVENT DATE: 20160425
